FAERS Safety Report 5455582-8 (Version None)
Quarter: 2007Q3

REPORT INFORMATION
  Report Type: 
  Country: None (occurrence: None)
  Receive Date: 20070918
  Receipt Date: 20070906
  Transmission Date: 20080115
  Serious: Yes (Hospitalization)
  Sender: FDA-Public Use
  Company Number: US-AMGEN-KDL239187

PATIENT
  Sex: Male

DRUGS (2)
  1. ENBREL [Suspect]
     Indication: PSORIASIS
     Route: 058
     Dates: start: 20041119
  2. ENBREL [Suspect]
     Indication: OSTEOARTHRITIS

REACTIONS (2)
  - CONDITION AGGRAVATED [None]
  - JOINT INJURY [None]
